FAERS Safety Report 17961494 (Version 1)
Quarter: 2020Q2

REPORT INFORMATION
  Report Type: Spontaneous
  Country: US (occurrence: US)
  Receive Date: 20200629
  Receipt Date: 20200629
  Transmission Date: 20200714
  Serious: Yes (Hospitalization)
  Sender: FDA-Public Use
  Company Number: None

PATIENT
  Sex: Female

DRUGS (15)
  1. CLONAZEPAM. [Concomitant]
     Active Substance: CLONAZEPAM
  2. OMEPRAZOLE. [Concomitant]
     Active Substance: OMEPRAZOLE
  3. AZITHROMYCIN ANHYDROUS. [Concomitant]
     Active Substance: AZITHROMYCIN ANHYDROUS
  4. FISH OIL [Concomitant]
     Active Substance: FISH OIL
  5. NITROFURANTN [Concomitant]
     Active Substance: NITROFURANTOIN
  6. MULTIVITAMIN [Concomitant]
     Active Substance: VITAMINS
  7. NIFEDIAC CC [Concomitant]
     Active Substance: NIFEDIPINE
  8. ALENDRONATE [Concomitant]
     Active Substance: ALENDRONATE SODIUM
  9. HYDROXYCHLOR [Concomitant]
     Active Substance: HYDROXYCHLOROQUINE
  10. LIDODERM [Concomitant]
     Active Substance: LIDOCAINE
  11. RESTASIS [Concomitant]
     Active Substance: CYCLOSPORINE
  12. UREA. [Concomitant]
     Active Substance: UREA
  13. CALCIUM [Concomitant]
     Active Substance: CALCIUM
  14. TRAMADOL. [Concomitant]
     Active Substance: TRAMADOL
  15. ENBREL [Suspect]
     Active Substance: ETANERCEPT
     Indication: RHEUMATOID ARTHRITIS
     Dosage: ?          OTHER FREQUENCY:WEEKLY;?
     Route: 058
     Dates: start: 20150602

REACTIONS (1)
  - Surgery [None]
